FAERS Safety Report 7519045-8 (Version None)
Quarter: 2011Q2

REPORT INFORMATION
  Report Type: 
  Country: None (occurrence: None)
  Receive Date: 20110602
  Receipt Date: 20110524
  Transmission Date: 20111010
  Serious: Yes (Hospitalization)
  Sender: FDA-Public Use
  Company Number: GB-ROCHE-760902

PATIENT
  Sex: Male
  Weight: 87.3 kg

DRUGS (11)
  1. ALLOPURINOL [Concomitant]
  2. BLINDED TMC435 [Suspect]
     Dosage: DOSE BLINDED
     Route: 048
     Dates: start: 20100303, end: 20100712
  3. MIRTAZAPINE [Concomitant]
     Dosage: FORM; DISPERSIBLE TABLET, FREQUENCY: ON
     Route: 048
  4. RIBAVIRIN [Suspect]
     Route: 048
     Dates: start: 20100303, end: 20100721
  5. ASPIRIN [Concomitant]
  6. PEGINTERFERON ALFA-2A [Suspect]
     Route: 058
     Dates: start: 20100303, end: 20100714
  7. ATORVASTATIN [Concomitant]
     Route: 048
  8. ADCAL [Concomitant]
     Dosage: FORM: CHEWABLE TABLET
     Route: 048
  9. ZOPICLONE [Concomitant]
  10. ACETAMINOPHEN [Concomitant]
     Route: 048
  11. PEPTAC [Concomitant]
     Dosage: FREQUENCY: PRN
     Route: 048

REACTIONS (1)
  - PROCTITIS ULCERATIVE [None]
